FAERS Safety Report 8557603-2 (Version None)
Quarter: 2012Q3

REPORT INFORMATION
  Report Type: 
  Country: None (occurrence: None)
  Receive Date: 20120801
  Receipt Date: 20120724
  Transmission Date: 20120928
  Serious: Yes (Other)
  Sender: FDA-Public Use
  Company Number: GB-B.I. PHARMACEUTICALS,INC./RIDGEFIELD-2012-UK-00977UK

PATIENT
  Sex: Female

DRUGS (1)
  1. ATROVENT [Suspect]
     Route: 055

REACTIONS (2)
  - CHOKING [None]
  - PRODUCT TASTE ABNORMAL [None]
